FAERS Safety Report 6921987-9 (Version None)
Quarter: 2010Q3

REPORT INFORMATION
  Report Type: 
  Country: None (occurrence: None)
  Receive Date: 20100812
  Receipt Date: 20100730
  Transmission Date: 20110219
  Serious: Yes (Hospitalization, Other)
  Sender: FDA-Public Use
  Company Number: PHHY2009CA02756

PATIENT
  Sex: Female

DRUGS (6)
  1. ZOMETA [Suspect]
     Indication: BREAST CANCER
     Dosage: 4 MG, QMO
     Route: 042
     Dates: start: 20080110, end: 20090324
  2. ZOMETA [Suspect]
     Dosage: 4 MG EVERY 12 WEEK
     Route: 042
     Dates: start: 20080212
  3. TAMOXIFEN CITRATE [Concomitant]
     Dosage: 20 MG
  4. PERCOCET [Concomitant]
  5. DILAUDID [Concomitant]
  6. GABAPENTIN [Concomitant]

REACTIONS (17)
  - BLOOD ALKALINE PHOSPHATASE INCREASED [None]
  - BLOOD POTASSIUM DECREASED [None]
  - CARBON DIOXIDE INCREASED [None]
  - CARCINOEMBRYONIC ANTIGEN INCREASED [None]
  - HAEMATOCRIT DECREASED [None]
  - HAEMOGLOBIN DECREASED [None]
  - LYMPHOCYTE COUNT DECREASED [None]
  - MEAN CELL VOLUME INCREASED [None]
  - MOBILITY DECREASED [None]
  - NERVE ROOT COMPRESSION [None]
  - PAIN [None]
  - RED BLOOD CELL COUNT DECREASED [None]
  - SPINAL DECOMPRESSION [None]
  - SPINAL DISORDER [None]
  - SPINAL LAMINECTOMY [None]
  - VERTEBROPLASTY [None]
  - WHITE BLOOD CELL COUNT DECREASED [None]
